FAERS Safety Report 21867636 (Version 1)
Quarter: 2023Q1

REPORT INFORMATION
  Report Type: Spontaneous
  Country: DE (occurrence: DE)
  Receive Date: 20230116
  Receipt Date: 20230116
  Transmission Date: 20230418
  Serious: Yes (Other)
  Sender: FDA-Public Use
  Company Number: DE-JNJFOC-20230110194

PATIENT
  Age: 8 Decade

DRUGS (3)
  1. DEXAMETHASONE [Suspect]
     Active Substance: DEXAMETHASONE
     Indication: Plasma cell myeloma
     Dosage: THE MOST RECENT LINE TREATMENT : 05/JAN/2023
     Route: 065
     Dates: start: 20210503
  2. CARFILZOMIB [Suspect]
     Active Substance: CARFILZOMIB
     Indication: Plasma cell myeloma
     Dosage: THE MOST RECENT LINE TREATMENT : 05/JAN/2023
     Route: 065
     Dates: start: 20210503
  3. DARZALEX [Suspect]
     Active Substance: DARATUMUMAB
     Indication: Plasma cell myeloma
     Dosage: THE MOST RECENT LINE TREATMENT : 05/JAN/2023
     Route: 065
     Dates: start: 20210503

REACTIONS (1)
  - Plasma cell myeloma [Unknown]
